FAERS Safety Report 6384850-0 (Version None)
Quarter: 2009Q4

REPORT INFORMATION
  Report Type: 
  Country: None (occurrence: None)
  Receive Date: 20091002
  Receipt Date: 20090923
  Transmission Date: 20100525
  Serious: Yes (Hospitalization)
  Sender: FDA-Public Use
  Company Number: US-BIOGENIDEC-2009BI030615

PATIENT
  Age: 41 Year
  Sex: Female

DRUGS (1)
  1. TYSABRI [Suspect]
     Indication: MULTIPLE SCLEROSIS
     Route: 042
     Dates: start: 20070223, end: 20090629

REACTIONS (9)
  - ADVERSE DRUG REACTION [None]
  - ALOPECIA [None]
  - DRUG INEFFECTIVE [None]
  - FATIGUE [None]
  - HYPOTHYROIDISM [None]
  - LIVER FUNCTION TEST ABNORMAL [None]
  - MULTIPLE SCLEROSIS [None]
  - TIC [None]
  - WEIGHT INCREASED [None]
